FAERS Safety Report 6699796-8 (Version None)
Quarter: 2010Q2

REPORT INFORMATION
  Report Type: 
  Country: None (occurrence: None)
  Receive Date: 20100427
  Receipt Date: 20100427
  Transmission Date: 20101027
  Serious: Yes (Death)
  Sender: FDA-Public Use
  Company Number: None

PATIENT
  Age: 51 Year
  Sex: Male
  Weight: 104.3273 kg

DRUGS (2)
  1. METHOTREXATE [Suspect]
     Indication: SPONDYLOARTHROPATHY
     Dosage: 25 MG WEEKLY PO
     Route: 048
     Dates: start: 20050101, end: 20100201
  2. REMICADE [Concomitant]

REACTIONS (2)
  - COMPLETED SUICIDE [None]
  - CONFUSIONAL STATE [None]
